FAERS Safety Report 6829740-1 (Version None)
Quarter: 2010Q3

REPORT INFORMATION
  Report Type: 
  Country: None (occurrence: None)
  Receive Date: 20100709
  Receipt Date: 20070620
  Transmission Date: 20110219
  Serious: No
  Sender: FDA-Public Use
  Company Number: US-PFIZER INC-2007007389

PATIENT
  Sex: Male
  Weight: 101.15 kg

DRUGS (11)
  1. CHANTIX [Suspect]
     Indication: SMOKING CESSATION THERAPY
     Dosage: EVERY DAY
     Dates: start: 20061225, end: 20070515
  2. SIMVASTATIN [Concomitant]
  3. NORVASC [Concomitant]
  4. ASPIRIN [Concomitant]
  5. FOLIC ACID [Concomitant]
  6. CYMBALTA [Concomitant]
  7. ETANERCEPT [Concomitant]
  8. ULTRAM [Concomitant]
  9. ACETYLSALICYLIC ACID [Concomitant]
  10. AMLODIPINE [Concomitant]
  11. TRAMADOL HCL [Concomitant]

REACTIONS (2)
  - ABNORMAL DREAMS [None]
  - SLEEP DISORDER [None]
